FAERS Safety Report 8817716 (Version 1)
Quarter: 2012Q4

REPORT INFORMATION
  Report Type: 
  Country: US (occurrence: US)
  Receive Date: 20121001
  Receipt Date: 20121001
  Transmission Date: 20130627
  Serious: No
  Sender: FDA-Public Use
  Company Number: US-PFIZER INC-2012241887

PATIENT
  Age: 79 Year
  Sex: Female
  Weight: 53.97 kg

DRUGS (5)
  1. LYRICA [Suspect]
     Indication: HERPES ZOSTER
     Dosage: 50 mg, 2x/day
     Route: 048
     Dates: start: 20120823
  2. LYRICA [Suspect]
     Dosage: 75 mg, 2x/day
     Route: 048
     Dates: start: 20120901
  3. MAXZIDE [Concomitant]
     Indication: PAIN IN EXTREMITY
     Dosage: 50mg half tablet, daily
  4. MAXZIDE [Concomitant]
     Indication: OEDEMA PERIPHERAL
  5. ONE-A-DAY [Concomitant]
     Indication: VITAMIN SUPPLEMENTATION
     Dosage: UNK, daily

REACTIONS (3)
  - Breast tenderness [Not Recovered/Not Resolved]
  - Breast swelling [Not Recovered/Not Resolved]
  - Breast pain [Not Recovered/Not Resolved]
